FAERS Safety Report 9215559 (Version 1)
Quarter: 2013Q2

REPORT INFORMATION
  Report Type: Spontaneous
  Country: US (occurrence: US)
  Receive Date: 20130407
  Receipt Date: 20130407
  Transmission Date: 20140414
  Serious: No
  Sender: FDA-Public Use
  Company Number: US-009507513-1304USA001250

PATIENT
  Sex: Female

DRUGS (2)
  1. JANUVIA [Suspect]
     Indication: TYPE 2 DIABETES MELLITUS
     Dosage: 100 MG TAKEN ONCE DAILY
     Route: 048
     Dates: start: 201104
  2. GLIPIZIDE [Concomitant]
     Dosage: 2 TABLETS DAILY
     Route: 048

REACTIONS (7)
  - Therapeutic response decreased [Unknown]
  - Glycosylated haemoglobin increased [Unknown]
  - Road traffic accident [Unknown]
  - Contusion [Unknown]
  - Rib fracture [Unknown]
  - Tendon rupture [Unknown]
  - Decreased appetite [Unknown]
